FAERS Safety Report 19915001 (Version 1)
Quarter: 2021Q4

REPORT INFORMATION
  Report Type: Spontaneous
  Country: KR (occurrence: KR)
  Receive Date: 20211004
  Receipt Date: 20211004
  Transmission Date: 20220304
  Serious: Yes (Hospitalization, Other)
  Sender: FDA-Public Use
  Company Number: KR-GLAXOSMITHKLINE-KR2021APC203242

PATIENT
  Age: 42 Year
  Sex: Male
  Weight: 60 kg

DRUGS (87)
  1. KIVEXA [Suspect]
     Active Substance: ABACAVIR SULFATE\LAMIVUDINE
     Indication: HIV infection
     Dosage: 600 MG, QD
     Route: 048
     Dates: start: 20160621
  2. MAGNESIUM SULFATE [Concomitant]
     Active Substance: MAGNESIUM SULFATE
     Indication: Product used for unknown indication
     Dosage: 5 G, QD
     Dates: start: 20170328, end: 20170328
  3. ACECLOFENAC [Concomitant]
     Active Substance: ACECLOFENAC
     Indication: Pain
     Dosage: 100 MG, QD,
     Route: 048
     Dates: start: 20170329, end: 20170329
  4. ACECLOFENAC [Concomitant]
     Active Substance: ACECLOFENAC
     Dosage: 100 MG, QD,
     Route: 048
     Dates: start: 20170330, end: 20170417
  5. ACECLOFENAC [Concomitant]
     Active Substance: ACECLOFENAC
     Dosage: 100 MG, QD,
     Route: 048
     Dates: start: 20170418, end: 20170418
  6. BRIMONIDINE [Concomitant]
     Active Substance: BRIMONIDINE TARTRATE
     Indication: Glaucoma
     Dosage: UNK UNK, QD, OPTHALMIC SOLUTION
     Route: 050
     Dates: start: 20140312
  7. CAMOSTAT [Concomitant]
     Active Substance: CAMOSTAT
     Indication: Pancreatitis chronic
     Dosage: 100 MG, QD
     Route: 048
     Dates: start: 20170303, end: 20170303
  8. CAMOSTAT [Concomitant]
     Active Substance: CAMOSTAT
     Dosage: 100 MG, QD
     Route: 048
     Dates: start: 20170304, end: 20170321
  9. CAMOSTAT [Concomitant]
     Active Substance: CAMOSTAT
     Dosage: 100 MG, QD
     Route: 048
     Dates: start: 20170322, end: 20170322
  10. CEFTRIAXONE [Concomitant]
     Active Substance: CEFTRIAXONE
     Indication: Pyrexia
     Dosage: 2 G, QD, INJECTION, POWDER, FOR SOLUTION
     Route: 042
     Dates: start: 20170224, end: 20170226
  11. CHLORPHENIRAMINE MALEATE [Concomitant]
     Active Substance: CHLORPHENIRAMINE MALEATE
     Indication: Product used for unknown indication
     Dosage: 2 ML, QD
     Route: 042
     Dates: start: 20170404, end: 20170404
  12. MONTMORILLONITE [Concomitant]
     Active Substance: MONTMORILLONITE
     Indication: Diarrhoea
     Dosage: 20 ML, QD
     Route: 048
     Dates: start: 20170401, end: 20170401
  13. MONTMORILLONITE [Concomitant]
     Active Substance: MONTMORILLONITE
     Dosage: 20 ML, QD
     Route: 048
     Dates: start: 20170402, end: 20170403
  14. MONTMORILLONITE [Concomitant]
     Active Substance: MONTMORILLONITE
     Dosage: 21 ML, QD
     Route: 048
     Dates: start: 20170404, end: 20170404
  15. MONTMORILLONITE [Concomitant]
     Active Substance: MONTMORILLONITE
     Dosage: 20 ML, QD
     Route: 048
     Dates: start: 20170301, end: 20170302
  16. MONTMORILLONITE [Concomitant]
     Active Substance: MONTMORILLONITE
     Dosage: 20 ML, QD
     Route: 048
     Dates: start: 20170303, end: 20170310
  17. MONTMORILLONITE [Concomitant]
     Active Substance: MONTMORILLONITE
     Dosage: 20 ML, QD
     Route: 048
     Dates: start: 20170311, end: 20170313
  18. MONTMORILLONITE [Concomitant]
     Active Substance: MONTMORILLONITE
     Dosage: 20 ML, QD
     Route: 048
     Dates: start: 20170314, end: 20170322
  19. ACETYLCYSTEINE [Concomitant]
     Active Substance: ACETYLCYSTEINE
     Indication: Product used for unknown indication
     Dosage: 6 ML, QD
     Route: 042
     Dates: start: 20170226, end: 20170226
  20. ACETYLCYSTEINE [Concomitant]
     Active Substance: ACETYLCYSTEINE
     Dosage: 6 ML, QD
     Route: 042
     Dates: start: 20170305, end: 20170305
  21. EPERISONE [Concomitant]
     Active Substance: EPERISONE
     Indication: Pain
     Dosage: 1 DF, QD, SUGAR COATED TABLET
     Route: 048
     Dates: start: 20170329, end: 20170329
  22. FAMOTIDINE [Concomitant]
     Active Substance: FAMOTIDINE
     Indication: Product used for unknown indication
     Dosage: 20 MG, QD,  INJECTION, POWDER,LYOPHILIZED, FOR SOLUTION
     Route: 042
     Dates: start: 20170223, end: 20170224
  23. FAMOTIDINE [Concomitant]
     Active Substance: FAMOTIDINE
     Dosage: 20 MG, QD, FILM-COATED TABLET
     Route: 048
     Dates: start: 20170411, end: 20170411
  24. FAMOTIDINE [Concomitant]
     Active Substance: FAMOTIDINE
     Dosage: 20 MG, QD, FILM-COATED TABLET
     Route: 048
     Dates: start: 20170412, end: 20170417
  25. FAMOTIDINE [Concomitant]
     Active Substance: FAMOTIDINE
     Dosage: 20 MG, QD,  INJECTION, POWDER,LYOPHILIZED, FOR SOLUTION
     Route: 042
     Dates: start: 20170323, end: 20170324
  26. FAMOTIDINE [Concomitant]
     Active Substance: FAMOTIDINE
     Dosage: 20 MG, QD, FILM-COATED TABLET
     Route: 048
     Dates: start: 20170418, end: 20170418
  27. FLUCONAZOLE [Concomitant]
     Active Substance: FLUCONAZOLE
     Indication: Product used for unknown indication
     Dosage: 400 MG, QD
     Route: 042
     Dates: start: 20170306, end: 20170307
  28. FOLIC ACID [Concomitant]
     Active Substance: FOLIC ACID
     Indication: Anaemia folate deficiency
     Dosage: 1 MG, QD
     Route: 048
     Dates: start: 20170225, end: 20170226
  29. GABAPENTIN [Concomitant]
     Active Substance: GABAPENTIN
     Indication: Polyneuropathy
     Dosage: 100 MG, QD, CAPSULE, HARD, POWDER
     Route: 048
     Dates: start: 20170225, end: 20170226
  30. LATANOPROST [Concomitant]
     Active Substance: LATANOPROST
     Indication: Glaucoma
     Dosage: UNK, QD
     Route: 050
     Dates: start: 20130516
  31. MEGESTROL [Concomitant]
     Active Substance: MEGESTROL
     Indication: Decreased appetite
     Dosage: 20 MG, QD
     Route: 048
     Dates: start: 20170225, end: 20170226
  32. MEROPENEM [Concomitant]
     Active Substance: MEROPENEM
     Indication: Product used for unknown indication
     Dosage: 1 G, QD
     Route: 042
     Dates: start: 20170303, end: 20170303
  33. MEROPENEM [Concomitant]
     Active Substance: MEROPENEM
     Dosage: 1 G, QD
     Route: 042
     Dates: start: 20170304, end: 20170311
  34. MEROPENEM [Concomitant]
     Active Substance: MEROPENEM
     Dosage: 1 G, QD
     Route: 042
     Dates: start: 20170312, end: 20170312
  35. METFORMIN\SITAGLIPTIN [Concomitant]
     Active Substance: METFORMIN\SITAGLIPTIN
     Indication: Type 2 diabetes mellitus
     Dosage: 1 DF
     Route: 048
     Dates: start: 20160901
  36. METOCLOPRAMIDE [Concomitant]
     Active Substance: METOCLOPRAMIDE
     Indication: Product used for unknown indication
     Dosage: 10 MG, QD
     Route: 030
     Dates: start: 20170223, end: 20170223
  37. METRONIDAZOLE [Concomitant]
     Active Substance: METRONIDAZOLE
     Indication: Gastroenteritis
     Dosage: 500 MG, QD
     Route: 042
     Dates: start: 20170403, end: 20170403
  38. METRONIDAZOLE [Concomitant]
     Active Substance: METRONIDAZOLE
     Indication: Large intestine infection
     Dosage: 500 MG, QD
     Route: 042
     Dates: start: 20170404, end: 20170404
  39. METRONIDAZOLE [Concomitant]
     Active Substance: METRONIDAZOLE
     Indication: Pancreatitis chronic
     Dosage: 500 MG, QD
     Route: 042
     Dates: start: 20170226, end: 20170226
  40. ACETAMINOPHEN [Concomitant]
     Active Substance: ACETAMINOPHEN
     Indication: Pyrexia
     Dosage: 650 MG, QD, EXTENDED RELEASE FILMCOATED TABLET
     Route: 048
     Dates: start: 20170228, end: 20170228
  41. ACETAMINOPHEN [Concomitant]
     Active Substance: ACETAMINOPHEN
     Dosage: 650 MG, QD, EXTENDED RELEASE FILMCOATED TABLET
     Route: 048
     Dates: start: 20170301, end: 20170312
  42. ACETAMINOPHEN [Concomitant]
     Active Substance: ACETAMINOPHEN
     Dosage: 650 MG, QD, EXTENDED RELEASE FILMCOATED TABLET
     Route: 048
     Dates: start: 20170313, end: 20170313
  43. MEPERIDINE [Concomitant]
     Active Substance: MEPERIDINE
     Indication: Pancreatitis chronic
     Dosage: 25 MG, QD
     Route: 030
     Dates: start: 20170223, end: 20170223
  44. MEPERIDINE [Concomitant]
     Active Substance: MEPERIDINE
     Dosage: 25 MG, QD
     Route: 030
     Dates: start: 20170224, end: 20170224
  45. MEPERIDINE [Concomitant]
     Active Substance: MEPERIDINE
     Dosage: 25 MG, QD
     Route: 030
     Dates: start: 20170225, end: 20170225
  46. POTASSIUM CHLORIDE [Concomitant]
     Active Substance: POTASSIUM CHLORIDE
     Indication: Hypokalaemia
     Dosage: 20 ?G, QD
     Route: 042
     Dates: start: 20170330, end: 20170330
  47. QUETIAPINE [Concomitant]
     Active Substance: QUETIAPINE
     Indication: Delirium
     Dosage: 100 MG, QD
     Route: 048
     Dates: start: 20170225, end: 20170321
  48. QUETIAPINE [Concomitant]
     Active Substance: QUETIAPINE
     Indication: Sleep disorder
     Dosage: 200 MG, QD
     Route: 048
     Dates: start: 20170407, end: 20170417
  49. RALTEGRAVIR [Concomitant]
     Active Substance: RALTEGRAVIR
     Indication: HIV infection
     Dosage: 400 MG, QD
     Route: 048
     Dates: start: 20130823
  50. THIAMINE [Concomitant]
     Active Substance: THIAMINE
     Indication: Product used for unknown indication
     Dosage: 50 MG, QD, INJECTION, SOLUTION
     Route: 042
     Dates: start: 20170226, end: 20170312
  51. THIAMINE [Concomitant]
     Active Substance: THIAMINE
     Dosage: 50 MG, QD, INJECTION, SOLUTION
     Route: 042
     Dates: start: 20170313, end: 20170313
  52. THIAMINE [Concomitant]
     Active Substance: THIAMINE
     Dosage: 250 MG, QD, INJECTION, SOLUTION
     Route: 042
     Dates: start: 20170328, end: 20170328
  53. THIAMINE [Concomitant]
     Active Substance: THIAMINE
     Dosage: 10 MG, QD, FILM COATED TABLET
     Route: 048
     Dates: start: 20170225, end: 20170226
  54. THIAMINE [Concomitant]
     Active Substance: THIAMINE
     Dosage: 10 MG, QD,  FILM COATED TABLET
     Route: 048
     Dates: start: 20170313, end: 20170313
  55. THIAMINE [Concomitant]
     Active Substance: THIAMINE
     Dosage: 10 MG, QD,  FILM COATED TABLET
     Route: 048
     Dates: start: 20170314, end: 20170321
  56. THIAMINE [Concomitant]
     Active Substance: THIAMINE
     Dosage: 10 MG, QD,  FILM COATED TABLET
     Route: 048
     Dates: start: 20170322, end: 20170322
  57. THIAMINE [Concomitant]
     Active Substance: THIAMINE
     Dosage: 10 MG, QD, FILM COATED TABLET
     Route: 048
     Dates: start: 20170329, end: 20170329
  58. THIAMINE [Concomitant]
     Active Substance: THIAMINE
     Dosage: 10 MG, QD,FILM COATED TABLET
     Route: 048
     Dates: start: 20170330, end: 20170417
  59. THIAMINE [Concomitant]
     Active Substance: THIAMINE
     Dosage: 10 MG, QD, LM COATED TABLET
     Route: 048
     Dates: start: 20170330, end: 20170417
  60. THIAMINE [Concomitant]
     Active Substance: THIAMINE
     Dosage: 10 MG, QD,FILM COATED TABLET
     Route: 048
     Dates: start: 20170418, end: 20170418
  61. TRAMADOL [Concomitant]
     Active Substance: TRAMADOL
     Indication: Gastroenteritis
     Dosage: 50 MG, QD
     Route: 042
     Dates: start: 20170402, end: 20170402
  62. TRAMADOL [Concomitant]
     Active Substance: TRAMADOL
     Indication: Large intestine infection
     Dosage: 50 MG, QD
     Route: 042
     Dates: start: 20170403, end: 20170403
  63. TRAMADOL [Concomitant]
     Active Substance: TRAMADOL
     Indication: Pancreatitis chronic
     Dosage: 50 MG, QD
     Route: 042
     Dates: start: 20170225, end: 20170225
  64. TRAMADOL [Concomitant]
     Active Substance: TRAMADOL
     Indication: Pain
     Dosage: 50 MG, QD
     Route: 042
     Dates: start: 20170227, end: 20170227
  65. TRAMADOL [Concomitant]
     Active Substance: TRAMADOL
     Dosage: 50 MG, QD
     Route: 042
     Dates: start: 20170306, end: 20170306
  66. TRAMADOL [Concomitant]
     Active Substance: TRAMADOL
     Dosage: 50 MG, QD
     Route: 042
     Dates: start: 20170307, end: 20170307
  67. ACETAMINOPHEN\TRAMADOL [Concomitant]
     Active Substance: ACETAMINOPHEN\TRAMADOL
     Indication: Pain
     Dosage: 1 DF, QD, EXTENDED RELEASE FILMCOATED
     Route: 048
     Dates: start: 20170329, end: 20170329
  68. VANCOMYCIN [Concomitant]
     Active Substance: VANCOMYCIN
     Indication: Product used for unknown indication
     Dosage: 1 G, QD
     Dates: start: 20170306, end: 20170309
  69. ZOLPIDEM [Concomitant]
     Active Substance: ZOLPIDEM TARTRATE
     Indication: Sleep disorder
     Dosage: 1 DF, QD, EXTENDED RELEASE TABLET
     Route: 048
     Dates: start: 20170406, end: 20170406
  70. AMOXICILLIN [Concomitant]
     Active Substance: AMOXICILLIN
     Indication: Product used for unknown indication
     Dosage: 625 MG, QD
     Route: 048
     Dates: start: 20170322, end: 20170322
  71. AMOXICILLIN [Concomitant]
     Active Substance: AMOXICILLIN
     Dosage: 625 MG, QD
     Route: 048
     Dates: start: 20170323
  72. AMOXICILLIN [Concomitant]
     Active Substance: AMOXICILLIN
     Dosage: 625 MG, QD
     Route: 048
     Dates: start: 20170411, end: 20170411
  73. AMOXICILLIN [Concomitant]
     Active Substance: AMOXICILLIN
     Dosage: 625 MG, QD
     Route: 048
     Dates: start: 20170412, end: 20170417
  74. AMOXICILLIN [Concomitant]
     Active Substance: AMOXICILLIN
     Dosage: 625 MG, QD
     Route: 048
     Dates: start: 20170418, end: 20170418
  75. PIPERACILLIN. [Concomitant]
     Active Substance: PIPERACILLIN SODIUM
     Indication: Gastroenteritis
     Dosage: 4.5 G, QD, INJECTION, POWDER,LYOPHILIZED, FOR SOLUTION
     Route: 042
     Dates: start: 20170312, end: 20170312
  76. PIPERACILLIN. [Concomitant]
     Active Substance: PIPERACILLIN SODIUM
     Indication: Large intestine infection
     Dosage: 4.5 G, QD, INJECTION, POWDER,LYOPHILIZED, FOR SOLUTION
     Route: 042
     Dates: start: 20170313, end: 20170321
  77. PIPERACILLIN. [Concomitant]
     Active Substance: PIPERACILLIN SODIUM
     Indication: Pancreatitis chronic
     Dosage: 4.5 G, QD, INJECTION, POWDER,LYOPHILIZED, FOR SOLUTION
     Route: 042
     Dates: start: 20170322, end: 20170322
  78. PIPERACILLIN. [Concomitant]
     Active Substance: PIPERACILLIN SODIUM
     Dosage: 4.5 G, QD, INJECTION, POWDER,LYOPHILIZED, FOR SOLUTION
     Route: 042
     Dates: start: 20170403, end: 20170403
  79. PIPERACILLIN. [Concomitant]
     Active Substance: PIPERACILLIN SODIUM
     Dosage: 4.5 G, QD, INJECTION, POWDER,LYOPHILIZED, FOR SOLUTION
     Route: 042
     Dates: start: 20170404, end: 20170410
  80. PIPERACILLIN. [Concomitant]
     Active Substance: PIPERACILLIN SODIUM
     Dosage: 4.5 G, QD, INJECTION, POWDER,LYOPHILIZED, FOR SOLUTION
     Route: 042
     Dates: start: 20170411, end: 20170411
  81. PIPERACILLIN. [Concomitant]
     Active Substance: PIPERACILLIN SODIUM
     Dosage: 4.5 G, QD, INJECTION, POWDER,LYOPHILIZED, FOR SOLUTION
     Route: 042
     Dates: start: 20170226, end: 20170226
  82. PIPERACILLIN. [Concomitant]
     Active Substance: PIPERACILLIN SODIUM
     Dosage: 4.5 G, QD, INJECTION, POWDER,LYOPHILIZED, FOR SOLUTION
     Route: 042
     Dates: start: 20170227, end: 20170302
  83. PIPERACILLIN. [Concomitant]
     Active Substance: PIPERACILLIN SODIUM
     Dosage: 4.5 G, QD, INJECTION, POWDER,LYOPHILIZED, FOR SOLUTION
     Route: 042
     Dates: start: 20170303, end: 20170303
  84. POTASSIUM PHOSPHATE [Concomitant]
     Active Substance: POTASSIUM PHOSPHATE
     Indication: Product used for unknown indication
     Dosage: 20 ML, QD
     Route: 042
     Dates: start: 20170227, end: 20170228
  85. POTASSIUM PHOSPHATE [Concomitant]
     Active Substance: POTASSIUM PHOSPHATE
     Dosage: 20 ML, QD
     Route: 042
     Dates: start: 20170303, end: 20170304
  86. POTASSIUM PHOSPHATE [Concomitant]
     Active Substance: POTASSIUM PHOSPHATE
     Dosage: 20 ML, QD
     Route: 042
     Dates: start: 20170307, end: 20170307
  87. TIMOLOL [Concomitant]
     Active Substance: TIMOLOL
     Indication: Glaucoma
     Dosage: UNK UNK, QD
     Route: 050
     Dates: start: 20140321

REACTIONS (2)
  - Pancreatitis chronic [Recovered/Resolved]
  - Pain [Recovering/Resolving]

NARRATIVE: CASE EVENT DATE: 20170223
